FAERS Safety Report 8386802-8 (Version None)
Quarter: 2012Q2

REPORT INFORMATION
  Report Type: 
  Country: None (occurrence: None)
  Receive Date: 20120525
  Receipt Date: 20120515
  Transmission Date: 20120825
  Serious: Yes (Hospitalization)
  Sender: FDA-Public Use
  Company Number: FR-BRISTOL-MYERS SQUIBB COMPANY-16598310

PATIENT
  Age: 69 Year
  Sex: Female

DRUGS (7)
  1. LERCANIDIPINE [Concomitant]
  2. SOTALOL HCL [Concomitant]
  3. CANDESARTAN CILEXETIL [Concomitant]
  4. IPILIMUMAB [Suspect]
     Indication: MALIGNANT MELANOMA
     Dosage: 1 DF: 5 MG/ML, 3 COURSES 2 INF:21NOV11 3 INF:02JAN12
     Route: 042
     Dates: start: 20111027
  5. FURADANTIN [Concomitant]
  6. POLYETHYLENE GLYCOL [Concomitant]
  7. PRAVASTATIN [Concomitant]

REACTIONS (2)
  - THROMBOCYTOPENIA [None]
  - DIABETIC KETOACIDOSIS [None]
